FAERS Safety Report 9297808 (Version 1)
Quarter: 2013Q2

REPORT INFORMATION
  Report Type: Spontaneous
  Country: US (occurrence: US)
  Receive Date: 20130520
  Receipt Date: 20130520
  Transmission Date: 20140414
  Serious: Yes (Other)
  Sender: FDA-Public Use
  Company Number: US-BAYER-2013-060580

PATIENT
  Age: 43 Year
  Sex: Female
  Weight: 107.48 kg

DRUGS (7)
  1. BEYAZ [Suspect]
  2. YAZ [Suspect]
  3. LISINOPRIL/HYDROCHLOROTHIAZIDE [Concomitant]
     Dosage: 20/25MG
     Dates: start: 20110314
  4. ACETAMINOPHEN W/CODEINE [Concomitant]
     Dosage: UNK
     Dates: start: 20111110
  5. VICODIN [Concomitant]
     Dosage: UNK
     Dates: start: 20111222
  6. ASPIRIN [Concomitant]
     Dosage: UNK
     Dates: start: 20111222
  7. CITALOPRAM [Concomitant]
     Indication: DEPRESSION
     Dosage: 20 MG, UNK
     Dates: start: 20111028

REACTIONS (2)
  - Deep vein thrombosis [None]
  - Thrombophlebitis superficial [None]
